FAERS Safety Report 5601564-2 (Version None)
Quarter: 2008Q1

REPORT INFORMATION
  Report Type: 
  Country: None (occurrence: None)
  Receive Date: 20080124
  Receipt Date: 20080115
  Transmission Date: 20080703
  Serious: Yes (Hospitalization)
  Sender: FDA-Public Use
  Company Number: JP-ROCHE-541903

PATIENT
  Age: 76 Year
  Sex: Male

DRUGS (1)
  1. INTERFERON ALFA [Suspect]
     Dosage: DOSAGE FORM REPORTED AS: 3 MU PER DAY ON THREE DAYS PER WEEK.
     Route: 065

REACTIONS (6)
  - ANOREXIA [None]
  - ATRIOVENTRICULAR BLOCK COMPLETE [None]
  - HEADACHE [None]
  - INTERSTITIAL LUNG DISEASE [None]
  - PLEURAL EFFUSION [None]
  - TINNITUS [None]
